FAERS Safety Report 18824777 (Version 1)
Quarter: 2021Q1

REPORT INFORMATION
  Report Type: Spontaneous
  Country: US (occurrence: US)
  Receive Date: 20210202
  Receipt Date: 20210202
  Transmission Date: 20210419
  Serious: Yes (Other)
  Sender: FDA-Public Use
  Company Number: US-BAYER-2021-038957

PATIENT
  Age: 82 Year
  Sex: Male

DRUGS (3)
  1. CORICIDIN HBP COLD AND FLU [Concomitant]
     Active Substance: ACETAMINOPHEN\CHLORPHENIRAMINE MALEATE
  2. CORICIDIN HBP MAXIMUM STRENGTH COLD AND FLU DAY AND NIGHT [Suspect]
     Active Substance: ACETAMINOPHEN\DEXTROMETHORPHAN HYDROBROMIDE\DOXYLAMINE SUCCINATE\GUAIFENESIN
     Indication: HYPERSENSITIVITY
     Dosage: 1 DF, ONCE
     Route: 048
     Dates: end: 20210124
  3. CORICIDIN HBP MAXIMUM STRENGTH COLD AND FLU DAY AND NIGHT [Suspect]
     Active Substance: ACETAMINOPHEN\DEXTROMETHORPHAN HYDROBROMIDE\DOXYLAMINE SUCCINATE\GUAIFENESIN
     Indication: NASOPHARYNGITIS

REACTIONS (7)
  - Foreign body in throat [Recovered/Resolved]
  - Drug ineffective [Unknown]
  - Nervousness [Recovered/Resolved]
  - Wrong technique in product usage process [None]
  - Choking [Recovered/Resolved]
  - Dyspnoea [Recovered/Resolved]
  - Abdominal discomfort [Recovered/Resolved]

NARRATIVE: CASE EVENT DATE: 20210124
